FAERS Safety Report 4319005-4 (Version None)
Quarter: 2004Q1

REPORT INFORMATION
  Report Type: 
  Country: None (occurrence: None)
  Receive Date: 20040316
  Receipt Date: 20040309
  Transmission Date: 20041129
  Serious: Yes (Life-Threatening, Hospitalization)
  Sender: FDA-Public Use
  Company Number: 2004-03-0611

PATIENT
  Age: 35 Year
  Sex: Male
  Weight: 70 kg

DRUGS (10)
  1. INTRON A [Suspect]
     Indication: HEPATITIS C
     Dosage: 10 MU-UNK* INTRAMUSCULAR
     Route: 030
     Dates: start: 20030801, end: 20040101
  2. INTRON A [Suspect]
     Indication: HEPATITIS C
     Dosage: 10 MU-UNK* INTRAMUSCULAR
     Route: 030
     Dates: end: 20040101
  3. INTRON A [Suspect]
     Indication: HEPATITIS C
     Dosage: 10 MU-UNK* INTRAMUSCULAR
     Route: 030
     Dates: start: 20030820
  4. REBETOL [Suspect]
     Indication: HEPATITIS C
     Dosage: 800 MG-UNK* ORAL
     Route: 048
     Dates: start: 20030801, end: 20040101
  5. REBETOL [Suspect]
     Indication: HEPATITIS C
     Dosage: 800 MG-UNK* ORAL
     Route: 048
     Dates: end: 20040101
  6. REBETOL [Suspect]
     Indication: HEPATITIS C
     Dosage: 800 MG-UNK* ORAL
     Route: 048
     Dates: start: 20030801
  7. URSO [Concomitant]
  8. BLOPRESS (CANDESARTAN CILEXETIL) [Concomitant]
  9. NIFEDIPINE [Concomitant]
  10. LANSOPRAZOLE [Concomitant]

REACTIONS (6)
  - BLOOD LACTATE DEHYDROGENASE INCREASED [None]
  - HAEMOLYTIC ANAEMIA [None]
  - HAEMOLYTIC URAEMIC SYNDROME [None]
  - PLATELET COUNT DECREASED [None]
  - RENAL DISORDER [None]
  - URINARY OCCULT BLOOD POSITIVE [None]
